FAERS Safety Report 14171049 (Version 1)
Quarter: 2017Q4

REPORT INFORMATION
  Report Type: Spontaneous
  Country: US (occurrence: US)
  Receive Date: 20171108
  Receipt Date: 20171108
  Transmission Date: 20180321
  Serious: Yes (Other)
  Sender: FDA-Public Use
  Company Number: US-ASTRAZENECA-2017SF11118

PATIENT
  Age: 62 Year
  Sex: Female

DRUGS (24)
  1. LISINOPRIL. [Suspect]
     Active Substance: LISINOPRIL
     Dosage: 40.0MG UNKNOWN
     Route: 048
  2. DILAUDID [Concomitant]
     Active Substance: HYDROMORPHONE HYDROCHLORIDE
     Dosage: 4.0MG UNKNOWN
  3. PANTOPRAZOLE [Concomitant]
     Active Substance: PANTOPRAZOLE
     Dosage: 40.0MG UNKNOWN
  4. IBRANCE [Suspect]
     Active Substance: PALBOCICLIB
     Indication: INVASIVE DUCTAL BREAST CARCINOMA
     Route: 048
  5. MARIJUANA [Concomitant]
     Active Substance: CANNABIS SATIVA SUBSP. INDICA TOP
  6. NYSTATIN. [Concomitant]
     Active Substance: NYSTATIN
     Dosage: 100000.0UG/ML UNKNOWN
     Route: 048
  7. OXYCODONE [Concomitant]
     Active Substance: OXYCODONE
     Dosage: 10.0MG UNKNOWN
  8. METFORMIN [Concomitant]
     Active Substance: METFORMIN HYDROCHLORIDE
     Dosage: 500.0MG UNKNOWN
  9. PROBIOTIC [Concomitant]
     Active Substance: PROBIOTICS NOS
     Dosage: 10 BILLION CELL CAPSULE
  10. FASLODEX [Suspect]
     Active Substance: FULVESTRANT
     Dosage: MONTHLY
     Route: 030
     Dates: start: 201612
  11. ALBUTEROL SULFATE. [Concomitant]
     Active Substance: ALBUTEROL SULFATE
     Dosage: 90.0UG UNKNOWN
     Route: 055
  12. AMLODIPINE [Concomitant]
     Active Substance: AMLODIPINE BESYLATE
     Dosage: 5.0MG UNKNOWN
  13. PERCOCET [Concomitant]
     Active Substance: ACETAMINOPHEN\OXYCODONE HYDROCHLORIDE
     Dosage: 5 MG-325 MG AS NEEDED
  14. BUPROPION HYDROCHLORIDE. [Concomitant]
     Active Substance: BUPROPION HYDROCHLORIDE
     Dosage: 300.0MG UNKNOWN
  15. TRAZODONE [Concomitant]
     Active Substance: TRAZODONE HYDROCHLORIDE
     Dosage: 150.0MG UNKNOWN
  16. VITAMIN C [Concomitant]
     Active Substance: ASCORBIC ACID
     Dosage: 1000.0MG UNKNOWN
  17. VITAMIN D3 [Concomitant]
     Active Substance: CHOLECALCIFEROL
     Dosage: 1000 UNIT
  18. IBRANCE [Suspect]
     Active Substance: PALBOCICLIB
     Indication: INVASIVE DUCTAL BREAST CARCINOMA
     Dosage: 75 MG 3 WEEKS IN A ROW FOLLOWED BY A WEEK OFF
     Route: 048
     Dates: start: 201509
  19. NEURONTIN [Suspect]
     Active Substance: GABAPENTIN
     Route: 065
  20. LETROZOLE. [Concomitant]
     Active Substance: LETROZOLE
     Dosage: 2.5MG UNKNOWN
     Dates: start: 201509
  21. HERCEPTIN [Concomitant]
     Active Substance: TRASTUZUMAB
     Dosage: EVERY 3 WEEKS
     Dates: start: 201512
  22. CALCIUM [Concomitant]
     Active Substance: CALCIUM
     Dosage: 600.0MG UNKNOWN
  23. LAMOTRIGINE. [Concomitant]
     Active Substance: LAMOTRIGINE
     Dosage: 200.0MG UNKNOWN
  24. PAXIL [Concomitant]
     Active Substance: PAROXETINE HYDROCHLORIDE
     Dosage: 40.0MG UNKNOWN

REACTIONS (35)
  - Asthma [Unknown]
  - Depression [Unknown]
  - Myalgia [Unknown]
  - Central nervous system lesion [Unknown]
  - Liver disorder [Unknown]
  - Diabetes mellitus [Unknown]
  - Hypertension [Unknown]
  - Dysphagia [Unknown]
  - Weight fluctuation [Unknown]
  - Axillary pain [Unknown]
  - Cough [Unknown]
  - Duodenitis [Unknown]
  - Bronchitis chronic [Unknown]
  - Breast cancer recurrent [Unknown]
  - Lymphoedema [Unknown]
  - Dyspnoea exertional [Unknown]
  - Insomnia [Unknown]
  - Hypomania [Unknown]
  - Fatigue [Unknown]
  - Hot flush [Unknown]
  - Pain [Unknown]
  - Contusion [Unknown]
  - Hyperlipidaemia [Unknown]
  - Cytopenia [Unknown]
  - Arthralgia [Unknown]
  - Gastrooesophageal reflux disease [Unknown]
  - Bipolar disorder [Unknown]
  - Restlessness [Unknown]
  - Renal failure [Unknown]
  - Headache [Unknown]
  - Neuropathy peripheral [Unknown]
  - Chest pain [Unknown]
  - Gastritis [Unknown]
  - Anxiety [Unknown]
  - Nervousness [Unknown]

NARRATIVE: CASE EVENT DATE: 20170612
